FAERS Safety Report 5016234-1 (Version None)
Quarter: 2006Q2

REPORT INFORMATION
  Report Type: 
  Country: None (occurrence: None)
  Receive Date: 20060414
  Receipt Date: 20060123
  Transmission Date: 20061013
  Serious: No
  Sender: FDA-Public Use
  Company Number: 2006SP000388

PATIENT
  Age: 48 Year
  Sex: Female
  Weight: 60.3284 kg

DRUGS (17)
  1. LUNESTA [Suspect]
     Indication: INSOMNIA
     Dosage: 3 MG; ORAL
     Route: 048
     Dates: start: 20060120, end: 20060120
  2. LUNESTA [Suspect]
     Indication: INSOMNIA
     Dosage: 3 MG; ORAL
     Route: 048
     Dates: start: 20060122
  3. ATENOLOL [Concomitant]
  4. PLAQUINOL TAB [Concomitant]
  5. CELEBREX [Concomitant]
  6. SYNTHROID [Concomitant]
  7. ALTACE [Concomitant]
  8. FOSAMAX [Concomitant]
  9. ADVAIR DISKUS 100/50 [Concomitant]
  10. DIPHENHYDRAMINE HYDROCHLORIDE [Concomitant]
  11. TRANXENE [Concomitant]
  12. FLEXERIL [Concomitant]
  13. ALBUTEROL [Concomitant]
  14. RHINOCORT [Concomitant]
  15. EYE DROPS [Concomitant]
  16. PROMETHAZINE [Concomitant]
  17. SEROQUEL [Concomitant]

REACTIONS (2)
  - DYSGEUSIA [None]
  - NAUSEA [None]
